FAERS Safety Report 6274098-2 (Version None)
Quarter: 2009Q3

REPORT INFORMATION
  Report Type: 
  Country: None (occurrence: None)
  Receive Date: 20090720
  Receipt Date: 20090707
  Transmission Date: 20100115
  Serious: Yes (Other)
  Sender: FDA-Public Use
  Company Number: PHHY2009GB18058

PATIENT
  Sex: Male

DRUGS (5)
  1. CLOZARIL [Suspect]
     Indication: SCHIZOPHRENIA
     Dosage: 450 MG
     Route: 048
     Dates: start: 20090119
  2. CLOZARIL [Suspect]
     Dosage: 450 MG AT 18:00 HRS AND 450 MG AGAIN AT 22:00 HRS
     Dates: start: 20090506
  3. CARBAMAZEPINE [Concomitant]
     Indication: EPILEPSY
     Dosage: 400 MG, BID
     Route: 048
  4. PIRENZEPINE [Concomitant]
     Indication: URINARY INCONTINENCE
     Dosage: 50 MG
     Route: 048
  5. IMIPRAMINE [Concomitant]
     Indication: URINARY INCONTINENCE
     Dosage: 50 MG
     Route: 048

REACTIONS (2)
  - INCORRECT DOSE ADMINISTERED [None]
  - SOMNOLENCE [None]
